FAERS Safety Report 5685303-5 (Version None)
Quarter: 2008Q1

REPORT INFORMATION
  Report Type: 
  Country: None (occurrence: None)
  Receive Date: 20080328
  Receipt Date: 20080317
  Transmission Date: 20080703
  Serious: Yes (Other)
  Sender: FDA-Public Use
  Company Number: JP-PFIZER INC-2008022363

PATIENT
  Age: 82 Year
  Sex: Male

DRUGS (3)
  1. DETRUSITOL SR [Suspect]
     Route: 048
  2. VESICARE [Concomitant]
     Route: 048
  3. BLADDERON [Concomitant]
     Route: 048

REACTIONS (2)
  - INTRAOCULAR PRESSURE INCREASED [None]
  - PHOTOPSIA [None]
